FAERS Safety Report 5795823-0 (Version None)
Quarter: 2008Q3

REPORT INFORMATION
  Report Type: 
  Country: None (occurrence: None)
  Receive Date: 20080701
  Receipt Date: 20080624
  Transmission Date: 20090109
  Serious: Yes (Life-Threatening, Hospitalization, Other)
  Sender: FDA-Public Use
  Company Number: JP-BAYER-200811116BYL

PATIENT
  Age: 69 Year
  Sex: Male
  Weight: 61 kg

DRUGS (36)
  1. CIPROXAN-I.V. [Suspect]
     Indication: POST PROCEDURAL INFECTION
     Route: 041
     Dates: start: 20080526, end: 20080527
  2. CIPROXAN-I.V. [Suspect]
     Route: 041
     Dates: start: 20080528, end: 20080528
  3. VANCOMYCIN [Suspect]
     Indication: STAPHYLOCOCCAL INFECTION
     Route: 041
     Dates: start: 20080528, end: 20080602
  4. CEFAMEZIN [Concomitant]
     Indication: DRUG USE FOR UNKNOWN INDICATION
     Route: 065
     Dates: start: 20080520, end: 20080520
  5. CEFAMEZIN [Concomitant]
     Route: 065
     Dates: start: 20080523, end: 20080523
  6. CEFAMEZIN [Concomitant]
     Route: 065
     Dates: start: 20080521, end: 20080522
  7. PENTAZOCINE LACTATE [Concomitant]
     Indication: DRUG USE FOR UNKNOWN INDICATION
     Route: 065
     Dates: start: 20080524, end: 20080524
  8. PENTAZOCINE LACTATE [Concomitant]
     Route: 065
     Dates: start: 20080528, end: 20080530
  9. PALUX [Concomitant]
     Indication: ARTERIOSCLEROSIS OBLITERANS
     Route: 041
     Dates: start: 20080501, end: 20080507
  10. PALUX [Concomitant]
     Route: 041
     Dates: start: 20080525, end: 20080603
  11. HEPAFLUSH [Concomitant]
     Indication: DRUG USE FOR UNKNOWN INDICATION
     Route: 065
     Dates: start: 20080520, end: 20080521
  12. HEPAFLUSH [Concomitant]
     Route: 065
     Dates: start: 20080526, end: 20080528
  13. MEROPEN [Concomitant]
     Indication: DRUG USE FOR UNKNOWN INDICATION
     Route: 065
     Dates: start: 20080524, end: 20080525
  14. MEROPEN [Concomitant]
     Route: 065
     Dates: start: 20080523, end: 20080523
  15. MEROPEN [Concomitant]
     Route: 065
     Dates: start: 20080526, end: 20080526
  16. AVELOX [Concomitant]
     Indication: DRUG USE FOR UNKNOWN INDICATION
     Dosage: UNIT DOSE: 400 MG
     Route: 048
     Dates: start: 20080501, end: 20080505
  17. AMARYL [Concomitant]
     Indication: DRUG USE FOR UNKNOWN INDICATION
     Route: 048
     Dates: start: 20080508, end: 20080521
  18. ANPLAG [Concomitant]
     Indication: DRUG USE FOR UNKNOWN INDICATION
     Route: 048
     Dates: start: 20080525, end: 20080604
  19. EPADEL S [Concomitant]
     Indication: DRUG USE FOR UNKNOWN INDICATION
     Route: 048
     Dates: start: 20080501
  20. OLMETEC [Concomitant]
     Indication: DRUG USE FOR UNKNOWN INDICATION
     Route: 048
     Dates: start: 20080515, end: 20080520
  21. OLMETEC [Concomitant]
     Route: 048
     Dates: start: 20080501, end: 20080512
  22. OLMETEC [Concomitant]
     Route: 048
     Dates: start: 20080513, end: 20080514
  23. KINEDAK [Concomitant]
     Indication: DRUG USE FOR UNKNOWN INDICATION
     Route: 048
     Dates: start: 20080501
  24. LEVOFLOXACIN [Concomitant]
     Indication: DRUG USE FOR UNKNOWN INDICATION
     Route: 048
     Dates: start: 20080501, end: 20080502
  25. DORNER [Concomitant]
     Indication: DRUG USE FOR UNKNOWN INDICATION
     Route: 048
     Dates: start: 20080507, end: 20080528
  26. MUCOSTA [Concomitant]
     Indication: DRUG USE FOR UNKNOWN INDICATION
     Route: 048
     Dates: start: 20080525, end: 20080604
  27. MUCOSTA [Concomitant]
     Route: 048
     Dates: start: 20080501, end: 20080505
  28. CYANOCOBALAMIN [Concomitant]
     Indication: DRUG USE FOR UNKNOWN INDICATION
     Route: 048
     Dates: start: 20080501
  29. MELBIN [Concomitant]
     Indication: DRUG USE FOR UNKNOWN INDICATION
     Route: 048
     Dates: start: 20080501, end: 20080521
  30. LOXONIN [Concomitant]
     Indication: DRUG USE FOR UNKNOWN INDICATION
     Route: 048
     Dates: start: 20080525, end: 20080604
  31. LOXONIN [Concomitant]
     Route: 048
     Dates: start: 20080522, end: 20080522
  32. LOXONIN [Concomitant]
     Route: 048
     Dates: start: 20080501, end: 20080505
  33. VOLTAREN [Concomitant]
     Indication: DRUG USE FOR UNKNOWN INDICATION
     Route: 054
     Dates: start: 20080523, end: 20080523
  34. VOLTAREN [Concomitant]
     Route: 054
     Dates: start: 20080524, end: 20080524
  35. VOLTAREN [Concomitant]
     Route: 054
     Dates: start: 20080525, end: 20080526
  36. VOLTAREN [Concomitant]
     Route: 054
     Dates: start: 20080528, end: 20080528

REACTIONS (2)
  - HEPATIC FUNCTION ABNORMAL [None]
  - RENAL IMPAIRMENT [None]
